FAERS Safety Report 19462237 (Version 8)
Quarter: 2023Q2

REPORT INFORMATION
  Report Type: Spontaneous
  Country: CA (occurrence: CA)
  Receive Date: 20210625
  Receipt Date: 20230615
  Transmission Date: 20230721
  Serious: Yes (Hospitalization, Other)
  Sender: FDA-Public Use
  Company Number: CA-SA-SAC20210623001355

PATIENT
  Age: 44 Year
  Sex: Male

DRUGS (33)
  1. DAUNORUBICIN [Suspect]
     Active Substance: DAUNORUBICIN
     Indication: Acute lymphocytic leukaemia
     Dosage: UNK
     Route: 042
  2. DAUNORUBICIN [Suspect]
     Active Substance: DAUNORUBICIN
     Dosage: UNK
     Route: 042
  3. CYCLOPHOSPHAMIDE [Suspect]
     Active Substance: CYCLOPHOSPHAMIDE
     Indication: Acute lymphocytic leukaemia
     Dosage: UNK
  4. CYCLOPHOSPHAMIDE [Suspect]
     Active Substance: CYCLOPHOSPHAMIDE
     Dosage: UNK
  5. POTASSIUM [Suspect]
     Active Substance: POTASSIUM
     Indication: Acute lymphocytic leukaemia
     Dosage: UNK
  6. POTASSIUM [Suspect]
     Active Substance: POTASSIUM
     Dosage: UNK
  7. DEXAMETHASONE [Suspect]
     Active Substance: DEXAMETHASONE
     Indication: Acute lymphocytic leukaemia
     Dosage: UNK
  8. DEXAMETHASONE [Suspect]
     Active Substance: DEXAMETHASONE
     Dosage: UNK
  9. FUROSEMIDE [Suspect]
     Active Substance: FUROSEMIDE
     Indication: Acute lymphocytic leukaemia
     Dosage: UNK
  10. FUROSEMIDE [Suspect]
     Active Substance: FUROSEMIDE
     Dosage: UNK
  11. FASTURTEC [Suspect]
     Active Substance: RASBURICASE
     Indication: Acute lymphocytic leukaemia
     Dosage: UNK
     Route: 042
  12. FASTURTEC [Suspect]
     Active Substance: RASBURICASE
     Dosage: UNK
     Route: 042
  13. METOCLOPRAMIDE HYDROCHLORIDE [Suspect]
     Active Substance: METOCLOPRAMIDE HYDROCHLORIDE
     Indication: Acute lymphocytic leukaemia
     Dosage: UNK
  14. METOCLOPRAMIDE HYDROCHLORIDE [Suspect]
     Active Substance: METOCLOPRAMIDE HYDROCHLORIDE
     Dosage: UNK
  15. ALLOPURINOL [Suspect]
     Active Substance: ALLOPURINOL
     Indication: Acute lymphocytic leukaemia
     Dosage: 5 DAILY DOSES
  16. ALLOPURINOL [Suspect]
     Active Substance: ALLOPURINOL
     Dosage: UNK
  17. ONDANSETRON [Suspect]
     Active Substance: ONDANSETRON
     Indication: Acute lymphocytic leukaemia
     Dosage: UNK
  18. ONDANSETRON [Suspect]
     Active Substance: ONDANSETRON
     Dosage: UNK
  19. CEFAZOLIN SODIUM [Suspect]
     Active Substance: CEFAZOLIN SODIUM
     Indication: Acute lymphocytic leukaemia
     Dosage: UNK
  20. CHOLECALCIFEROL [Suspect]
     Active Substance: CHOLECALCIFEROL
     Indication: Acute lymphocytic leukaemia
     Dosage: UNK
  21. CHOLECALCIFEROL [Suspect]
     Active Substance: CHOLECALCIFEROL
     Dosage: UNK
  22. CYTARABINE [Suspect]
     Active Substance: CYTARABINE
     Indication: Acute lymphocytic leukaemia
     Dosage: UNK
  23. CYTARABINE [Suspect]
     Active Substance: CYTARABINE
     Dosage: UNK
  24. ETOPOSIDE [Suspect]
     Active Substance: ETOPOSIDE
     Indication: Acute lymphocytic leukaemia
     Dosage: UNK
  25. ETOPOSIDE [Suspect]
     Active Substance: ETOPOSIDE
     Dosage: UNK
  26. FILGRASTIM [Suspect]
     Active Substance: FILGRASTIM
     Indication: Acute lymphocytic leukaemia
     Dosage: UNK
  27. FILGRASTIM [Suspect]
     Active Substance: FILGRASTIM
     Dosage: UNK
  28. MYCAMINE [Suspect]
     Active Substance: MICAFUNGIN SODIUM
     Indication: Acute lymphocytic leukaemia
     Dosage: UNK
     Route: 042
  29. MYCAMINE [Suspect]
     Active Substance: MICAFUNGIN SODIUM
     Indication: Fungal infection
     Dosage: UNK
     Route: 042
  30. ZINECARD [Suspect]
     Active Substance: DEXRAZOXANE HYDROCHLORIDE
     Indication: Acute lymphocytic leukaemia
     Dosage: UNK
     Route: 042
  31. ZINECARD [Suspect]
     Active Substance: DEXRAZOXANE HYDROCHLORIDE
     Dosage: UNK
     Route: 042
  32. CYCLOSPORINE [Suspect]
     Active Substance: CYCLOSPORINE
     Indication: Acute lymphocytic leukaemia
     Dosage: UNK
  33. CYCLOPHOSPHAMIDE [Suspect]
     Active Substance: CYCLOPHOSPHAMIDE
     Indication: Acute lymphocytic leukaemia
     Dosage: UNK

REACTIONS (10)
  - Disseminated aspergillosis [Unknown]
  - Fungal infection [Unknown]
  - Lymphoid tissue hypoplasia [Unknown]
  - Lymphopenia [Unknown]
  - Thymus hypoplasia [Unknown]
  - Clostridium difficile colitis [Unknown]
  - Bacterial infection [Unknown]
  - Cellulitis [Unknown]
  - Cytomegalovirus viraemia [Unknown]
  - Product use in unapproved indication [Unknown]
